FAERS Safety Report 15411031 (Version 1)
Quarter: 2018Q3

REPORT INFORMATION
  Report Type: Spontaneous
  Country: US (occurrence: US)
  Receive Date: 20180921
  Receipt Date: 20180921
  Transmission Date: 20181010
  Serious: No
  Sender: FDA-Public Use
  Company Number: US-ASTRAZENECA-2018SF07761

PATIENT
  Sex: Female

DRUGS (1)
  1. FARXIGA [Suspect]
     Active Substance: DAPAGLIFLOZIN PROPANEDIOL
     Route: 048

REACTIONS (5)
  - Musculoskeletal stiffness [Unknown]
  - Injection site haemorrhage [Unknown]
  - Muscle tightness [Unknown]
  - Injection site pain [Unknown]
  - Stress urinary incontinence [Unknown]
